FAERS Safety Report 4590362-7 (Version None)
Quarter: 2005Q1

REPORT INFORMATION
  Report Type: 
  Country: None (occurrence: None)
  Receive Date: 20050217
  Receipt Date: 20050210
  Transmission Date: 20050727
  Serious: Yes (Hospitalization, Other)
  Sender: FDA-Public Use
  Company Number: 230525K05USA

PATIENT
  Age: 53 Year
  Sex: Female

DRUGS (3)
  1. REBIF [Suspect]
     Indication: MULTIPLE SCLEROSIS
     Dosage: SEE IMAGE
     Route: 058
     Dates: start: 20030117, end: 20050210
  2. REBIF [Suspect]
     Indication: MULTIPLE SCLEROSIS
     Dosage: SEE IMAGE
     Route: 058
     Dates: start: 20050211
  3. ZOCOR [Concomitant]

REACTIONS (16)
  - ADJUSTMENT DISORDER [None]
  - ALANINE AMINOTRANSFERASE INCREASED [None]
  - ANXIETY [None]
  - ASPARTATE AMINOTRANSFERASE INCREASED [None]
  - ASTHENIA [None]
  - BLADDER CANCER [None]
  - CONDITION AGGRAVATED [None]
  - COUGH [None]
  - FEELING ABNORMAL [None]
  - MULTIPLE SCLEROSIS [None]
  - MYALGIA [None]
  - OTITIS MEDIA [None]
  - PAIN IN EXTREMITY [None]
  - SINUS CONGESTION [None]
  - SYRINGOMYELIA [None]
  - WHITE BLOOD CELL COUNT DECREASED [None]
